FAERS Safety Report 14638122 (Version 3)
Quarter: 2018Q2

REPORT INFORMATION
  Report Type: Report from Study
  Country: CR (occurrence: CR)
  Receive Date: 20180314
  Receipt Date: 20180523
  Transmission Date: 20180711
  Serious: Yes (Other)
  Sender: FDA-Public Use
  Company Number: CR-BAYER-2018-042363

PATIENT
  Age: 55 Year
  Sex: Female

DRUGS (1)
  1. BETAFERON [Suspect]
     Active Substance: INTERFERON BETA-1B
     Indication: MULTIPLE SCLEROSIS
     Dosage: 1 ML, QOD
     Route: 058
     Dates: start: 20180226, end: 201803

REACTIONS (6)
  - Syncope [None]
  - Pyrexia [None]
  - Breast pain [None]
  - Feeling cold [None]
  - Chills [None]
  - Abdominal pain upper [None]

NARRATIVE: CASE EVENT DATE: 20180228
